FAERS Safety Report 6408493-5 (Version None)
Quarter: 2009Q4

REPORT INFORMATION
  Report Type: 
  Country: None (occurrence: None)
  Receive Date: 20091021
  Receipt Date: 20091008
  Transmission Date: 20100525
  Serious: Yes (Other)
  Sender: FDA-Public Use
  Company Number: PHEH2007US11535

PATIENT
  Sex: Female

DRUGS (1)
  1. AREDIA [Suspect]

REACTIONS (14)
  - ANAEMIA [None]
  - ANHEDONIA [None]
  - ANXIETY [None]
  - DIARRHOEA [None]
  - FATIGUE [None]
  - GASTRINOMA [None]
  - INJURY [None]
  - MYELOPROLIFERATIVE DISORDER [None]
  - OSTEONECROSIS [None]
  - OSTEOPOROSIS [None]
  - PAIN [None]
  - SPINAL COMPRESSION FRACTURE [None]
  - ULCER HAEMORRHAGE [None]
  - WEIGHT DECREASED [None]
